FAERS Safety Report 7600908-X (Version None)
Quarter: 2011Q3

REPORT INFORMATION
  Report Type: 
  Country: None (occurrence: None)
  Receive Date: 20110711
  Receipt Date: 20110701
  Transmission Date: 20111222
  Serious: Yes (Hospitalization)
  Sender: FDA-Public Use
  Company Number: DK-TEVA-288850ISR

PATIENT
  Sex: Female
  Weight: 87 kg

DRUGS (5)
  1. BETAMETHASONE [Concomitant]
  2. AMPICILLIN SODIUM [Concomitant]
  3. ATOSIBAN [Concomitant]
     Indication: PREMATURE LABOUR
  4. METRONIDAZOLE [Concomitant]
  5. DICLOFENAC [Suspect]
     Dosage: 50 MG, TID
     Route: 065

REACTIONS (2)
  - PREMATURE LABOUR [None]
  - MATERNAL EXPOSURE DURING PREGNANCY [None]
